FAERS Safety Report 7329439-1 (Version None)
Quarter: 2011Q1

REPORT INFORMATION
  Report Type: 
  Country: None (occurrence: None)
  Receive Date: 20110225
  Receipt Date: 20110225
  Transmission Date: 20110831
  Serious: Yes (Other)
  Sender: FDA-Public Use
  Company Number: None

PATIENT
  Age: 35 Year
  Sex: Female
  Weight: 35.3806 kg

DRUGS (1)
  1. MACROBID [Suspect]
     Indication: CYSTITIS
     Dosage: ONE CAPSULE TWICE A DAY PO
     Route: 048
     Dates: start: 20110217, end: 20110217

REACTIONS (2)
  - HEADACHE [None]
  - NAUSEA [None]
